FAERS Safety Report 5419785-0 (Version None)
Quarter: 2007Q3

REPORT INFORMATION
  Report Type: 
  Country: None (occurrence: None)
  Receive Date: 20070820
  Receipt Date: 20070812
  Transmission Date: 20080115
  Serious: Yes (Other)
  Sender: FDA-Public Use
  Company Number: AU-ASTRAZENECA-2007AP01871

PATIENT
  Age: 24 Year
  Sex: Female

DRUGS (4)
  1. SEROQUEL [Suspect]
     Route: 048
     Dates: start: 20070322, end: 20070322
  2. SEROQUEL [Suspect]
     Route: 048
     Dates: start: 20070328, end: 20070328
  3. SEROQUEL [Suspect]
     Route: 048
     Dates: start: 20070812, end: 20070812
  4. DIAZEPAM [Suspect]
     Dosage: 8 TABLETS

REACTIONS (1)
  - OVERDOSE [None]
